FAERS Safety Report 7590389-7 (Version None)
Quarter: 2011Q3

REPORT INFORMATION
  Report Type: 
  Country: None (occurrence: None)
  Receive Date: 20110705
  Receipt Date: 20110622
  Transmission Date: 20111222
  Serious: Yes (Hospitalization)
  Sender: FDA-Public Use
  Company Number: PHHY2011TR55961

PATIENT
  Age: 32 Year
  Sex: Male

DRUGS (4)
  1. CLONAZEPAM [Suspect]
     Dosage: 115 DF, UNK
     Route: 048
  2. ALPRAZOLAM [Suspect]
     Indication: ANXIETY
     Dosage: UNK
  3. CLONAZEPAM [Suspect]
     Indication: ANXIETY
     Dosage: 20 DF, 10-20 TABLETS PER DAY
     Route: 048
  4. CLONAZEPAM [Suspect]
     Dosage: 100 DF, UNK
     Route: 048

REACTIONS (11)
  - HYPERSOMNIA [None]
  - RESTLESSNESS [None]
  - ASTHENIA [None]
  - HYPOAESTHESIA [None]
  - MEMORY IMPAIRMENT [None]
  - BALANCE DISORDER [None]
  - ANHEDONIA [None]
  - INSOMNIA [None]
  - DECREASED INTEREST [None]
  - FATIGUE [None]
  - DRUG DEPENDENCE [None]
